FAERS Safety Report 6771958-0 (Version None)
Quarter: 2010Q2

REPORT INFORMATION
  Report Type: 
  Country: None (occurrence: None)
  Receive Date: 20100616
  Receipt Date: 20090618
  Transmission Date: 20101027
  Serious: No
  Sender: FDA-Public Use
  Company Number: US-ASTRAZENECA-2009UW16137

PATIENT
  Age: 72 Year
  Sex: Female
  Weight: 57.2 kg

DRUGS (4)
  1. RHINOCORT [Suspect]
     Route: 045
  2. SINGULAIR [Concomitant]
  3. NEXIUM [Concomitant]
  4. ADVAIR DISKUS 100/50 [Concomitant]

REACTIONS (1)
  - ANOSMIA [None]
